FAERS Safety Report 12634400 (Version 1)
Quarter: 2016Q3

REPORT INFORMATION
  Report Type: Spontaneous
  Country: BE (occurrence: BE)
  Receive Date: 20160808
  Receipt Date: 20160808
  Transmission Date: 20161109
  Serious: Yes (Hospitalization, Other)
  Sender: FDA-Public Use
  Company Number: BE-GLAXOSMITHKLINE-BE2016GSK114563

PATIENT
  Age: 69 Year
  Sex: Male

DRUGS (2)
  1. ACYCLOVIR. [Suspect]
     Active Substance: ACYCLOVIR
     Indication: OPHTHALMIC HERPES ZOSTER
     Dosage: 800 MG PO 5 DD
  2. ACYCLOVIR. [Suspect]
     Active Substance: ACYCLOVIR
     Dosage: 750 MG 3 DD
     Route: 042

REACTIONS (28)
  - Asthenia [Recovered/Resolved]
  - Confusional state [Recovered/Resolved]
  - Traumatic lumbar puncture [Recovered/Resolved]
  - Electroencephalogram abnormal [Recovered/Resolved]
  - Hyponatraemia [Recovered/Resolved]
  - Pneumonia aspiration [Recovered/Resolved]
  - CSF protein increased [Recovered/Resolved]
  - Pyrexia [Recovered/Resolved]
  - Disorientation [Recovered/Resolved]
  - Spinal column stenosis [Recovered/Resolved]
  - Epilepsy [Recovered/Resolved]
  - Encephalitis [Recovered/Resolved]
  - Areflexia [Recovered/Resolved]
  - Neurotoxicity [Recovered/Resolved]
  - Neuralgia [Recovered/Resolved]
  - Presyncope [Recovered/Resolved]
  - Hallucination, visual [Recovered/Resolved]
  - Acute kidney injury [Recovered/Resolved]
  - Hyperkalaemia [Recovered/Resolved]
  - Encephalopathy [Recovered/Resolved]
  - Pupillary reflex impaired [Recovered/Resolved]
  - Neurological decompensation [Recovered/Resolved]
  - Nephropathy toxic [Recovered/Resolved]
  - Malaise [Recovered/Resolved]
  - Unresponsive to stimuli [Recovered/Resolved]
  - Pleocytosis [Recovered/Resolved]
  - Condition aggravated [Recovered/Resolved]
  - Coma [Recovered/Resolved]

NARRATIVE: CASE EVENT DATE: 201505
